FAERS Safety Report 14561398 (Version 3)
Quarter: 2019Q2

REPORT INFORMATION
  Report Type: Spontaneous
  Country: US (occurrence: US)
  Receive Date: 20180222
  Receipt Date: 20190520
  Transmission Date: 20190711
  Serious: No
  Sender: FDA-Public Use
  Company Number: US-PFIZER INC-2018074789

PATIENT
  Age: 69 Year
  Sex: Female

DRUGS (3)
  1. LYRICA [Suspect]
     Active Substance: PREGABALIN
     Indication: OSTEOARTHRITIS
     Dosage: 50 MG, 2X/DAY
     Dates: start: 201710, end: 2017
  2. LYRICA [Suspect]
     Active Substance: PREGABALIN
     Indication: ARTHRITIS
  3. LYRICA [Suspect]
     Active Substance: PREGABALIN
     Indication: FIBROMYALGIA

REACTIONS (7)
  - Arthralgia [Unknown]
  - Product dispensing error [Unknown]
  - Fall [Unknown]
  - Gait disturbance [Unknown]
  - Concussion [Unknown]
  - Musculoskeletal pain [Unknown]
  - Spinal pain [Unknown]

NARRATIVE: CASE EVENT DATE: 20180128
